FAERS Safety Report 24657582 (Version 1)
Quarter: 2024Q4

REPORT INFORMATION
  Report Type: Spontaneous
  Country: US (occurrence: US)
  Receive Date: 20241125
  Receipt Date: 20241125
  Transmission Date: 20250114
  Serious: Yes (Hospitalization)
  Sender: AUROBINDO
  Company Number: US-MLMSERVICE-20241104-PI248842-00273-1

PATIENT
  Age: 29 Year
  Sex: Female

DRUGS (25)
  1. DEXMEDETOMIDINE [Suspect]
     Active Substance: DEXMEDETOMIDINE
     Indication: Sedation
     Dosage: 0.5 MICROGRAM/KILOGRAM, EVERY HOUR
     Route: 065
  2. KETAMINE HYDROCHLORIDE [Suspect]
     Active Substance: KETAMINE HYDROCHLORIDE
     Indication: Sedation
     Dosage: 30 MILLIGRAM
     Route: 065
  3. ROCURONIUM BROMIDE [Suspect]
     Active Substance: ROCURONIUM BROMIDE
     Indication: General anaesthesia
     Dosage: 50 MILLIGRAM
     Route: 065
  4. FENTANYL [Suspect]
     Active Substance: FENTANYL
     Indication: General anaesthesia
     Dosage: 100 MICROGRAM
     Route: 065
  5. PROPOFOL [Suspect]
     Active Substance: PROPOFOL
     Indication: General anaesthesia
     Dosage: 50 MILLIGRAM
     Route: 065
  6. FUROSEMIDE [Concomitant]
     Active Substance: FUROSEMIDE
     Indication: Mitral valve stenosis
     Dosage: UNK
     Route: 065
  7. FUROSEMIDE [Concomitant]
     Active Substance: FUROSEMIDE
     Indication: Pulmonary hypertension
  8. FUROSEMIDE [Concomitant]
     Active Substance: FUROSEMIDE
     Indication: Left ventricular failure
  9. FUROSEMIDE [Concomitant]
     Active Substance: FUROSEMIDE
     Indication: Cardiac failure chronic
  10. DIGOXIN [Concomitant]
     Active Substance: DIGOXIN
     Indication: Mitral valve stenosis
     Dosage: UNK
     Route: 065
  11. DIGOXIN [Concomitant]
     Active Substance: DIGOXIN
     Indication: Pulmonary hypertension
  12. DIGOXIN [Concomitant]
     Active Substance: DIGOXIN
     Indication: Left ventricular failure
  13. DIGOXIN [Concomitant]
     Active Substance: DIGOXIN
     Indication: Left ventricular failure
  14. ILOPROST [Concomitant]
     Active Substance: ILOPROST
     Indication: Mitral valve stenosis
     Dosage: UNK
     Route: 065
  15. ILOPROST [Concomitant]
     Active Substance: ILOPROST
     Indication: Pulmonary hypertension
  16. ILOPROST [Concomitant]
     Active Substance: ILOPROST
     Indication: Left ventricular failure
  17. ILOPROST [Concomitant]
     Active Substance: ILOPROST
     Indication: Left ventricular failure
  18. METOPROLOL [Concomitant]
     Active Substance: METOPROLOL
     Indication: Mitral valve stenosis
     Dosage: UNK
     Route: 065
  19. METOPROLOL [Concomitant]
     Active Substance: METOPROLOL
     Indication: Pulmonary hypertension
  20. METOPROLOL [Concomitant]
     Active Substance: METOPROLOL
     Indication: Left ventricular failure
  21. METOPROLOL [Concomitant]
     Active Substance: METOPROLOL
     Indication: Left ventricular failure
  22. MIDAZOLAM [Suspect]
     Active Substance: MIDAZOLAM
     Indication: Sedation
     Dosage: 1 MILLIGRAM
     Route: 065
  23. MIDAZOLAM [Suspect]
     Active Substance: MIDAZOLAM
     Indication: General anaesthesia
  24. OXYGEN [Concomitant]
     Active Substance: OXYGEN
     Indication: Product used for unknown indication
     Dosage: 6 LITER (6 L O2)
     Route: 065
  25. CITRIC ACID MONOHYDRATE\SODIUM CITRATE [Concomitant]
     Active Substance: CITRIC ACID MONOHYDRATE\SODIUM CITRATE
     Indication: Premedication
     Dosage: 10 MILLILITER
     Route: 065

REACTIONS (2)
  - Vomiting [Unknown]
  - Hypotension [Unknown]
